FAERS Safety Report 5532269-4 (Version None)
Quarter: 2007Q4

REPORT INFORMATION
  Report Type: 
  Country: None (occurrence: None)
  Receive Date: 20071203
  Receipt Date: 20071122
  Transmission Date: 20080405
  Serious: Yes (Hospitalization, Other)
  Sender: FDA-Public Use
  Company Number: GB-JNJFOC-20071109556

PATIENT
  Sex: Female
  Weight: 51 kg

DRUGS (12)
  1. INFLIXIMAB [Suspect]
     Route: 042
  2. INFLIXIMAB [Suspect]
     Indication: RHEUMATOID ARTHRITIS
     Route: 042
  3. PENICILLAMINE [Concomitant]
  4. SULFASALAZINE [Concomitant]
  5. METHOTREXATE [Concomitant]
  6. ALENDRONATE SODIUM [Concomitant]
  7. AMITRIPTLINE HCL [Concomitant]
  8. ATENOLOL [Concomitant]
  9. FERROUS SULFATE TAB [Concomitant]
  10. FOLIC ACID [Concomitant]
  11. OMEPRAZOLE [Concomitant]
  12. SOLPADEINE [Concomitant]

REACTIONS (4)
  - ARTHRITIS BACTERIAL [None]
  - FISTULA [None]
  - OSTEOMYELITIS [None]
  - ULCER [None]
